FAERS Safety Report 19121719 (Version 1)
Quarter: 2021Q2

REPORT INFORMATION
  Report Type: Spontaneous
  Country: US (occurrence: US)
  Receive Date: 20210412
  Receipt Date: 20210412
  Transmission Date: 20210717
  Serious: No
  Sender: FDA-Public Use
  Company Number: None

PATIENT
  Age: 43 Year
  Sex: Female
  Weight: 47.25 kg

DRUGS (11)
  1. EVENITY [Concomitant]
     Active Substance: ROMOSOZUMAB-AQQG
  2. DOXYCYLINE HYCLATE 100 MG CAP [Suspect]
     Active Substance: DOXYCYCLINE HYCLATE
     Indication: RESPIRATORY TRACT INFECTION
     Dosage: ?          QUANTITY:1 CAPSULE(S);?
     Route: 048
  3. QNASL [Concomitant]
     Active Substance: BECLOMETHASONE DIPROPIONATE
  4. ESTRADIOL. [Concomitant]
     Active Substance: ESTRADIOL
  5. REMICADE [Concomitant]
     Active Substance: INFLIXIMAB
  6. VITAMIN C [Concomitant]
     Active Substance: ASCORBIC ACID
  7. ALBUTERNOL [Concomitant]
  8. BUPROPION. [Concomitant]
     Active Substance: BUPROPION
  9. FAMCYCLOVIR [Concomitant]
     Active Substance: FAMCICLOVIR
  10. LYRICA [Concomitant]
     Active Substance: PREGABALIN
  11. VITAMIN D [Concomitant]
     Active Substance: VITAMIN D NOS

REACTIONS (1)
  - Paraesthesia [None]

NARRATIVE: CASE EVENT DATE: 20210410
